FAERS Safety Report 14740648 (Version 3)
Quarter: 2018Q2

REPORT INFORMATION
  Report Type: Report from Study
  Country: DE (occurrence: DE)
  Receive Date: 20180410
  Receipt Date: 20180504
  Transmission Date: 20180711
  Serious: Yes (Hospitalization)
  Sender: FDA-Public Use
  Company Number: DE-INCYTE CORPORATION-2018IN003252

PATIENT

DRUGS (4)
  1. DICLO [Concomitant]
     Active Substance: DICLOFENAC SODIUM
     Indication: PAIN IN EXTREMITY
     Dosage: 75 MG, UNK
     Route: 065
     Dates: start: 20150617, end: 20160927
  2. INCB018424 [Suspect]
     Active Substance: RUXOLITINIB
     Indication: PRIMARY MYELOFIBROSIS
     Dosage: 22.5 MG, QD
     Route: 048
     Dates: start: 20150519
  3. RESTEX [Concomitant]
     Active Substance: BENSERAZIDE\LEVODOPA
     Indication: RESTLESS LEGS SYNDROME
     Dosage: 100MG/25MG
     Route: 065
     Dates: start: 20130823
  4. LYRICA [Concomitant]
     Active Substance: PREGABALIN
     Indication: PRODUCT USED FOR UNKNOWN INDICATION
     Dosage: 75 OT, UNK
     Route: 065
     Dates: start: 20160929

REACTIONS (2)
  - Pruritus [Recovered/Resolved]
  - Langerhans^ cell histiocytosis [Recovered/Resolved]

NARRATIVE: CASE EVENT DATE: 20170915
